FAERS Safety Report 9519645 (Version 1)
Quarter: 2013Q1

REPORT INFORMATION
  Report Type: Spontaneous
  Country: US (occurrence: None)
  Receive Date: 20130305
  Receipt Date: 20130305
  Transmission Date: 20140127
  Serious: Yes (Hospitalization)
  Sender: FDA-Public Use
  Company Number: 163-21880-12082559

PATIENT
  Age: 59 Year
  Sex: Male

DRUGS (4)
  1. REVLIMID (LENALIDOMIDE) (CAPSULES) [Suspect]
     Indication: PLASMA CELL MYELOMA
     Route: 048
     Dates: start: 20110702
  2. FOLIC ACID (FOLIC ACID) [Concomitant]
  3. MAGNESIUM (MAGNESIUM) [Concomitant]
  4. VITAMINS [Concomitant]

REACTIONS (3)
  - Fatigue [None]
  - Pain [None]
  - Vomiting [None]
